FAERS Safety Report 8141991-5 (Version None)
Quarter: 2012Q1

REPORT INFORMATION
  Report Type: 
  Country: None (occurrence: None)
  Receive Date: 20120216
  Receipt Date: 20120213
  Transmission Date: 20120608
  Serious: Yes (Disabling, Other)
  Sender: FDA-Public Use
  Company Number: JP-PFIZER INC-2012017431

PATIENT
  Sex: Female

DRUGS (3)
  1. LOXONIN [Concomitant]
     Dosage: UNK
     Route: 062
  2. PATELL [Concomitant]
     Dosage: UNK
     Route: 062
  3. LYRICA [Suspect]
     Indication: NEURALGIA
     Dosage: 25 MG, 1X/DAY
     Route: 048
     Dates: start: 20111017, end: 20111120

REACTIONS (3)
  - FALL [None]
  - CONTUSION [None]
  - DIZZINESS [None]
